FAERS Safety Report 14252285 (Version 1)
Quarter: 2017Q4

REPORT INFORMATION
  Report Type: Spontaneous
  Country: FR (occurrence: FR)
  Receive Date: 20171205
  Receipt Date: 20171205
  Transmission Date: 20180321
  Serious: Yes (Hospitalization, Other)
  Sender: FDA-Public Use
  Company Number: FR-MYLANLABS-2017M1075723

PATIENT
  Age: 30 Year
  Sex: Female

DRUGS (1)
  1. PREDNISONE. [Suspect]
     Active Substance: PREDNISONE
     Indication: ANTINUCLEAR ANTIBODY POSITIVE
     Dosage: 0.3MG/KG/DAY
     Route: 065

REACTIONS (5)
  - Dysphagia [Recovering/Resolving]
  - Cytomegalovirus infection [Recovering/Resolving]
  - Guillain-Barre syndrome [Recovering/Resolving]
  - Maternal exposure during pregnancy [Recovering/Resolving]
  - Facial paralysis [Recovering/Resolving]
